FAERS Safety Report 15781905 (Version 1)
Quarter: 2019Q1

REPORT INFORMATION
  Report Type: Report from Study
  Country: US (occurrence: US)
  Receive Date: 20190102
  Receipt Date: 20190102
  Transmission Date: 20190417
  Serious: Yes (Hospitalization)
  Sender: FDA-Public Use
  Company Number: US-MYLANLABS-2018M1096022

PATIENT
  Age: 74 Year
  Sex: Female
  Weight: 60.9 kg

DRUGS (5)
  1. DOXORUBICIN HYDROCHLORIDE FOR INJECTION [Suspect]
     Active Substance: DOXORUBICIN HYDROCHLORIDE
     Indication: MALIGNANT PERITONEAL NEOPLASM
     Dosage: 40 MILLIGRAM/SQ. METER, CYCLE
     Route: 042
     Dates: start: 20180814
  2. AVELUMAB [Suspect]
     Active Substance: AVELUMAB
     Indication: FALLOPIAN TUBE CANCER
     Dosage: 10 MILLIGRAM/KILOGRAM, CYCLE
     Route: 042
     Dates: start: 20180410, end: 20180731
  3. AVELUMAB [Suspect]
     Active Substance: AVELUMAB
     Dosage: 631 MILLIGRAM, CYCLE
     Route: 042
     Dates: start: 20180731, end: 20180731
  4. DOXORUBICIN HYDROCHLORIDE FOR INJECTION [Suspect]
     Active Substance: DOXORUBICIN HYDROCHLORIDE
     Dosage: 66 MILLIGRAM, CYCLE
     Route: 042
     Dates: start: 2018, end: 20181016
  5. BEVACIZUMAB. [Suspect]
     Active Substance: BEVACIZUMAB
     Indication: MALIGNANT PERITONEAL NEOPLASM
     Dosage: 600 MILLIGRAM
     Dates: start: 20180814, end: 20181016

REACTIONS (4)
  - Vomiting [Recovered/Resolved]
  - Nausea [Recovered/Resolved]
  - Acute myocardial infarction [Recovered/Resolved]
  - Malignant pleural effusion [Recovered/Resolved]

NARRATIVE: CASE EVENT DATE: 20181024
